FAERS Safety Report 14379821 (Version 4)
Quarter: 2018Q4

REPORT INFORMATION
  Report Type: Spontaneous
  Country: US (occurrence: US)
  Receive Date: 20180112
  Receipt Date: 20181201
  Transmission Date: 20190204
  Serious: No
  Sender: FDA-Public Use
  Company Number: US-PFIZER INC-2018009175

PATIENT
  Age: 56 Year
  Sex: Female

DRUGS (7)
  1. ADRIAMYCIN [Concomitant]
     Active Substance: DOXORUBICIN HYDROCHLORIDE
     Dosage: UNK
  2. DOCETAXEL. [Suspect]
     Active Substance: DOCETAXEL
     Dosage: 49 MG, EVERY THREE WEEKS (4 CYCLES)
     Dates: start: 2012, end: 2013
  3. DOCETAXEL (SANDOZ INC.) [Suspect]
     Active Substance: DOCETAXEL
     Indication: BREAST CANCER
     Dosage: 49 MG, EVERY THREE WEEKS (4 CYCLES)
     Dates: start: 2012, end: 2013
  4. TAXOL [Concomitant]
     Active Substance: PACLITAXEL
     Dosage: UNK
  5. NEOSAR [Concomitant]
     Active Substance: CYCLOPHOSPHAMIDE
     Dosage: 4 CYCLES
  6. DOCETAXEL. [Suspect]
     Active Substance: DOCETAXEL
     Indication: BREAST CANCER
     Dosage: UNK
     Dates: start: 20120703, end: 20121010
  7. DOXIL [Concomitant]
     Active Substance: DOXORUBICIN HYDROCHLORIDE
     Dosage: UNK

REACTIONS (2)
  - Alopecia [Not Recovered/Not Resolved]
  - Madarosis [Not Recovered/Not Resolved]

NARRATIVE: CASE EVENT DATE: 201310
